FAERS Safety Report 22624530 (Version 1)
Quarter: 2023Q2

REPORT INFORMATION
  Report Type: Spontaneous
  Country: GB (occurrence: GB)
  Receive Date: 20230621
  Receipt Date: 20230621
  Transmission Date: 20230721
  Serious: Yes (Hospitalization)
  Sender: FDA-Public Use
  Company Number: GB-ACRAF SpA-2023-031125

PATIENT
  Age: 44 Year
  Sex: Female

DRUGS (11)
  1. PHENYTOIN [Interacting]
     Active Substance: PHENYTOIN
     Indication: Frontal lobe epilepsy
     Dosage: UNK
     Route: 065
     Dates: start: 202303
  2. PHENYTOIN [Interacting]
     Active Substance: PHENYTOIN
     Dosage: UNK
     Route: 065
     Dates: end: 202210
  3. PHENYTOIN [Interacting]
     Active Substance: PHENYTOIN
     Dosage: 200 MILLIGRAM
     Route: 065
     Dates: start: 20230406
  4. PHENYTOIN [Interacting]
     Active Substance: PHENYTOIN
     Dosage: 100 MILLIGRAM
     Route: 065
     Dates: start: 20230413, end: 20230428
  5. CENOBAMATE [Interacting]
     Active Substance: CENOBAMATE
     Indication: Frontal lobe epilepsy
     Dosage: UNK
     Route: 048
     Dates: start: 20220926
  6. CENOBAMATE [Interacting]
     Active Substance: CENOBAMATE
     Dosage: UNK
     Route: 048
     Dates: start: 202302
  7. CLOBAZAM [Concomitant]
     Active Substance: CLOBAZAM
     Dosage: UNK
     Route: 065
  8. KEPPRA [Concomitant]
     Active Substance: LEVETIRACETAM
     Dosage: 1500 MILLIGRAM, BID (1500MG TWICE A DAY)
     Route: 065
  9. LAMOTRIGINE [Concomitant]
     Active Substance: LAMOTRIGINE
     Dosage: UNK
     Route: 065
     Dates: start: 202303
  10. VALPROATE [Concomitant]
     Active Substance: VALPROIC ACID
     Dosage: UNK
     Route: 065
     Dates: start: 202303
  11. PERAMPANEL [Concomitant]
     Active Substance: PERAMPANEL
     Dosage: UNK
     Route: 065

REACTIONS (4)
  - Anticonvulsant drug level increased [Recovered/Resolved]
  - Drug interaction [Recovered/Resolved]
  - Ataxia [Recovered/Resolved]
  - Dizziness [Recovered/Resolved]

NARRATIVE: CASE EVENT DATE: 20230406
